FAERS Safety Report 5227370-9 (Version None)
Quarter: 2007Q1

REPORT INFORMATION
  Report Type: 
  Country: None (occurrence: None)
  Receive Date: 20070202
  Receipt Date: 20070117
  Transmission Date: 20070707
  Serious: Yes (Hospitalization)
  Sender: FDA-Public Use
  Company Number: US-BRISTOL-MYERS SQUIBB COMPANY-13656780

PATIENT
  Sex: Male

DRUGS (3)
  1. PRINIVIL [Suspect]
  2. CAPTOPRIL [Suspect]
     Indication: HYPERTENSION
     Route: 048
  3. SPIRONOLACTONE [Suspect]
     Route: 048

REACTIONS (3)
  - DIALYSIS [None]
  - HYPERKALAEMIA [None]
  - RENAL FAILURE ACUTE [None]
